FAERS Safety Report 9030405 (Version 1)
Quarter: 2013Q1

REPORT INFORMATION
  Report Type: Spontaneous
  Country: US (occurrence: US)
  Receive Date: 20130122
  Receipt Date: 20130122
  Transmission Date: 20140127
  Serious: Yes (Other)
  Sender: FDA-Public Use
  Company Number: US-ABBOTT-13P-163-1038546-00

PATIENT
  Age: 67 None
  Sex: Male
  Weight: 81.72 kg

DRUGS (3)
  1. ANDROGEL [Suspect]
     Indication: BLOOD TESTOSTERONE DECREASED
     Dosage: TWO 5GM PACKET DAILY
     Dates: start: 2009
  2. METFORMIN [Concomitant]
     Indication: BLOOD GLUCOSE ABNORMAL
  3. SABOXONE [Concomitant]
     Indication: PAIN

REACTIONS (8)
  - Road traffic accident [Recovered/Resolved]
  - Intervertebral disc protrusion [Recovering/Resolving]
  - Dysuria [Recovering/Resolving]
  - Pollakiuria [Not Recovered/Not Resolved]
  - Depression [Not Recovered/Not Resolved]
  - Urinary tract infection staphylococcal [Recovering/Resolving]
  - Dysuria [Recovered/Resolved]
  - Medication error [Unknown]
